FAERS Safety Report 20405217 (Version 1)
Quarter: 2022Q1

REPORT INFORMATION
  Report Type: Spontaneous
  Country: US (occurrence: US)
  Receive Date: 20220131
  Receipt Date: 20220131
  Transmission Date: 20220423
  Serious: No
  Sender: FDA-Public Use
  Company Number: US-PFIZER INC-202200091685

PATIENT
  Age: 83 Year
  Sex: Female
  Weight: 79.83 kg

DRUGS (4)
  1. GLUCOTROL XL [Suspect]
     Active Substance: GLIPIZIDE
     Indication: Diabetes mellitus
     Dosage: 5 MG, 2X/DAY (ONE TABLET TWICE A DAY; 5MG)
     Dates: start: 20220101, end: 20220111
  2. FUROSEMIDE [Concomitant]
     Active Substance: FUROSEMIDE
     Indication: Diuretic therapy
     Dosage: 20 MG, 1X/DAY (20MG A DAY)
  3. ATORVASTATIN [Concomitant]
     Active Substance: ATORVASTATIN
     Indication: Blood cholesterol
     Dosage: 10 MG, 1X/DAY (10MG ADAY)
  4. FELODIPINE [Concomitant]
     Active Substance: FELODIPINE
     Indication: Blood pressure measurement
     Dosage: 5 MG, 1X/DAY (5MG ONE TIME A DAY)

REACTIONS (2)
  - Drug intolerance [Unknown]
  - Illness [Unknown]

NARRATIVE: CASE EVENT DATE: 20220101
